FAERS Safety Report 7880970-X (Version None)
Quarter: 2011Q4

REPORT INFORMATION
  Report Type: 
  Country: None (occurrence: None)
  Receive Date: 20111101
  Receipt Date: 20111021
  Transmission Date: 20120403
  Serious: Yes (Other)
  Sender: FDA-Public Use
  Company Number: AR-ROCHE-GNE324187

PATIENT
  Sex: Female

DRUGS (1)
  1. XOLAIR [Suspect]
     Indication: ASTHMA
     Dosage: 1 AMP, Q15D, DOSE=1 AMP, DAILY DOSE=.066 AMP, TOTAL DOSE=1 AMP
     Dates: start: 20110701

REACTIONS (6)
  - PHLEBITIS [None]
  - INJECTION SITE SWELLING [None]
  - INFLUENZA LIKE ILLNESS [None]
  - NERVOUSNESS [None]
  - PYREXIA [None]
  - ALOPECIA [None]
